FAERS Safety Report 25717841 (Version 1)
Quarter: 2025Q3

REPORT INFORMATION
  Report Type: Spontaneous
  Country: TR (occurrence: TR)
  Receive Date: 20250822
  Receipt Date: 20250822
  Transmission Date: 20251020
  Serious: Yes (Other)
  Sender: ASTELLAS
  Company Number: TR-ASTELLAS-2025-AER-002309

PATIENT
  Sex: Male

DRUGS (2)
  1. ENZALUTAMIDE [Suspect]
     Active Substance: ENZALUTAMIDE
     Indication: Prostate cancer
     Route: 065
  2. TALAZOPARIB [Suspect]
     Active Substance: TALAZOPARIB
     Indication: Prostate cancer
     Route: 065

REACTIONS (6)
  - Acquired syringomyelia [Not Recovered/Not Resolved]
  - Hemiparesis [Unknown]
  - Motor neurone disease [Unknown]
  - Muscular weakness [Not Recovered/Not Resolved]
  - Urinary incontinence [Unknown]
  - Toxicity to various agents [Unknown]
